FAERS Safety Report 23405650 (Version 1)
Quarter: 2024Q1

REPORT INFORMATION
  Report Type: Spontaneous
  Country: DE (occurrence: None)
  Receive Date: 20240116
  Receipt Date: 20240116
  Transmission Date: 20240410
  Serious: Yes (Other)
  Sender: FDA-Public Use
  Company Number: DE-ROCHE-3486810

PATIENT
  Sex: Male

DRUGS (1)
  1. OCREVUS [Suspect]
     Active Substance: OCRELIZUMAB
     Indication: Product used for unknown indication
     Dosage: OCRELIZUMAB DOSE PRIOR TO AE IN /OCT/2023
     Route: 065

REACTIONS (9)
  - General physical health deterioration [Unknown]
  - Hemiplegia [Unknown]
  - Chills [Unknown]
  - Pyrexia [Unknown]
  - Night sweats [Unknown]
  - Asthenia [Unknown]
  - Weight decreased [Unknown]
  - Gait disturbance [Unknown]
  - Gait inability [Unknown]
